FAERS Safety Report 4492581-7 (Version None)
Quarter: 2004Q4

REPORT INFORMATION
  Report Type: 
  Country: None (occurrence: None)
  Receive Date: 20041029
  Receipt Date: 20041018
  Transmission Date: 20050328
  Serious: Yes (Hospitalization)
  Sender: FDA-Public Use
  Company Number: 2004SE05780

PATIENT
  Age: 76 Year
  Sex: Female

DRUGS (1)
  1. COKENZEN [Suspect]
     Indication: HYPERTENSION
     Dosage: 1 DF QD PO
     Route: 048
     Dates: start: 20040101, end: 20040908

REACTIONS (1)
  - ANAEMIA [None]
